FAERS Safety Report 7296921-5 (Version None)
Quarter: 2011Q1

REPORT INFORMATION
  Report Type: 
  Country: None (occurrence: None)
  Receive Date: 20110216
  Receipt Date: 20110207
  Transmission Date: 20110831
  Serious: Yes (Hospitalization)
  Sender: FDA-Public Use
  Company Number: US-CEPHALON-2010006059

PATIENT
  Sex: Female
  Weight: 82 kg

DRUGS (6)
  1. VITAMIN D [Concomitant]
  2. POTASSIUM CHLORIDE [Concomitant]
  3. MAXZIDE [Concomitant]
  4. OXYGEN [Concomitant]
  5. NUVIGIL [Suspect]
     Indication: NARCOLEPSY
     Route: 048
     Dates: start: 20101102, end: 20101104
  6. LEVOTHYROXINE SODIUM [Concomitant]

REACTIONS (1)
  - ATRIAL FIBRILLATION [None]
